FAERS Safety Report 6941064-0 (Version None)
Quarter: 2010Q3

REPORT INFORMATION
  Report Type: 
  Country: None (occurrence: None)
  Receive Date: 20100825
  Receipt Date: 20100819
  Transmission Date: 20110219
  Serious: Yes (Death, Hospitalization)
  Sender: FDA-Public Use
  Company Number: US-GILEAD-2010-0030470

PATIENT
  Sex: Male
  Weight: 108.96 kg

DRUGS (21)
  1. LETAIRIS [Suspect]
     Indication: PULMONARY ARTERIAL HYPERTENSION
     Dates: start: 20100430
  2. LASIX [Concomitant]
  3. PREDNISONE [Concomitant]
  4. SPIRIVA [Concomitant]
  5. WARFARIN [Concomitant]
  6. RANEXA [Concomitant]
  7. MAVIK [Concomitant]
  8. HYTRIN [Concomitant]
  9. BACTRIM DS [Concomitant]
  10. METFORMIN HCL [Concomitant]
  11. GEMFIBROZIL [Concomitant]
  12. ZOCOR [Concomitant]
  13. ASCORBIC ACID [Concomitant]
  14. MAGNESIUM OXIDE [Concomitant]
  15. NEXIUM [Concomitant]
  16. KLOR-CON [Concomitant]
  17. FISH OIL [Concomitant]
  18. MULTI-VITAMINS [Concomitant]
  19. ASPIRIN [Concomitant]
  20. CALCIUM [Concomitant]
  21. VITAMIN B6 [Concomitant]

REACTIONS (2)
  - DEATH [None]
  - HYPOXIA [None]
